FAERS Safety Report 15645427 (Version 4)
Quarter: 2020Q3

REPORT INFORMATION
  Report Type: Spontaneous
  Country: US (occurrence: US)
  Receive Date: 20181121
  Receipt Date: 20200922
  Transmission Date: 20201102
  Serious: Yes (Other)
  Sender: FDA-Public Use
  Company Number: US-PFIZER INC-2018480885

PATIENT
  Age: 78 Year
  Sex: Female

DRUGS (1)
  1. XELJANZ XR [Suspect]
     Active Substance: TOFACITINIB CITRATE
     Indication: RHEUMATOID ARTHRITIS
     Dosage: 11 MG, DAILY
     Route: 048
     Dates: start: 202008

REACTIONS (5)
  - Weight increased [Unknown]
  - Cataract [Unknown]
  - Vitamin D deficiency [Unknown]
  - Drug hypersensitivity [Unknown]
  - Cough [Unknown]
